FAERS Safety Report 23734513 (Version 2)
Quarter: 2024Q2

REPORT INFORMATION
  Report Type: Spontaneous
  Country: ES (occurrence: ES)
  Receive Date: 20240412
  Receipt Date: 20240627
  Transmission Date: 20240715
  Serious: No
  Sender: FDA-Public Use
  Company Number: ES-ROCHE-3530312

PATIENT
  Age: 57 Year
  Sex: Male

DRUGS (1)
  1. ENTRECTINIB [Suspect]
     Active Substance: ENTRECTINIB
     Indication: Product used for unknown indication
     Route: 065

REACTIONS (6)
  - Disinhibition [Unknown]
  - Irritability [Unknown]
  - Aggression [Unknown]
  - Hallucination [Unknown]
  - Aphasia [Unknown]
  - Abnormal behaviour [Unknown]
